FAERS Safety Report 24863400 (Version 6)
Quarter: 2025Q2

REPORT INFORMATION
  Report Type: Spontaneous
  Country: US (occurrence: US)
  Receive Date: 20250120
  Receipt Date: 20250424
  Transmission Date: 20250717
  Serious: Yes (Hospitalization, Other)
  Sender: SANOFI AVENTIS
  Company Number: US-SA-2025SA016277

PATIENT
  Age: 72 Year
  Sex: Female
  Weight: 60.317 kg

DRUGS (4)
  1. LUMIZYME [Suspect]
     Active Substance: ALGLUCOSIDASE ALFA
     Indication: Glycogen storage disease type II
     Dosage: 1300 MG, QOW
     Route: 042
     Dates: start: 20220512
  2. SODIUM CHLORIDE [Concomitant]
     Active Substance: SODIUM CHLORIDE
  3. SODIUM CHLORIDE [Concomitant]
     Active Substance: SODIUM CHLORIDE
  4. STERILE WATER [Concomitant]
     Active Substance: WATER

REACTIONS (5)
  - Pneumonia [Unknown]
  - Influenza [Not Recovered/Not Resolved]
  - COVID-19 [Unknown]
  - Infusion site bruising [Unknown]
  - Weight increased [Not Recovered/Not Resolved]

NARRATIVE: CASE EVENT DATE: 20250101
